FAERS Safety Report 8782041 (Version 1)
Quarter: 2012Q4

REPORT INFORMATION
  Report Type: 
  Country: US (occurrence: US)
  Receive Date: 20120913
  Receipt Date: 20120913
  Transmission Date: 20130627
  Serious: No
  Sender: FDA-Public Use
  Company Number: US-VERTEX PHARMACEUTICAL INC.-2012-020074

PATIENT
  Sex: Male
  Weight: 100 kg

DRUGS (4)
  1. VX-950 [Suspect]
     Indication: HEPATITIS C
     Dosage: 750 mg, tid
     Route: 048
  2. PREDNISONE [Concomitant]
     Dosage: 1 mg, UNK
  3. ATENOLOL [Concomitant]
     Dosage: 25 mg, UNK
  4. ASA [Concomitant]
     Dosage: 81 mg, UNK

REACTIONS (2)
  - Decreased appetite [Unknown]
  - Nausea [Unknown]
